FAERS Safety Report 22235009 (Version 1)
Quarter: 2023Q2

REPORT INFORMATION
  Report Type: Spontaneous
  Country: US (occurrence: US)
  Receive Date: 20230420
  Receipt Date: 20230420
  Transmission Date: 20230722
  Serious: Yes (Hospitalization)
  Sender: FDA-Public Use
  Company Number: US-MYLANLABS-2023M1041697

PATIENT
  Age: 56 Year
  Sex: Male

DRUGS (11)
  1. DEXAMETHASONE [Suspect]
     Active Substance: DEXAMETHASONE
     Indication: Plasma cell myeloma
     Dosage: UNK UNK, CYCLE, ADMINISTERED UNDER THE DARA-R-D REGIMEN
     Route: 065
     Dates: start: 201805
  2. DEXAMETHASONE [Suspect]
     Active Substance: DEXAMETHASONE
     Indication: Plasma cell myeloma
     Dosage: 40 MILLIGRAM, CYCLE, ADMINISTERED ON DAYS 1-4 OF EACH CYCLE UNDER THE KRD-PACE REGIMEN
     Route: 048
  3. ETOPOSIDE [Suspect]
     Active Substance: ETOPOSIDE
     Indication: Plasma cell myeloma
     Dosage: 40 MILLIGRAM/SQ. METER, QD, ADMINISTERED ON DAYS 1-4 UNDER THE KRD-PACE REGIMEN
     Route: 042
  4. CISPLATIN [Suspect]
     Active Substance: CISPLATIN
     Indication: Plasma cell myeloma
     Dosage: 10 MILLIGRAM/SQ. METER, QD, ADMINISTERED UNDER THE KRD-PACE REGIMEN
     Route: 065
  5. DOXORUBICIN [Suspect]
     Active Substance: DOXORUBICIN
     Indication: Plasma cell myeloma
     Dosage: 10 MILLIGRAM/SQ. METER, QD, ADMINISTERED UNDER THE KRD-PACE REGIMEN
     Route: 065
  6. DARATUMUMAB [Suspect]
     Active Substance: DARATUMUMAB
     Indication: Plasma cell myeloma
     Dosage: UNK UNK, CYCLE, ADMINISTERED UNDER THE DARA-R-D REGIMEN
     Route: 065
     Dates: start: 201805
  7. LENALIDOMIDE [Suspect]
     Active Substance: LENALIDOMIDE
     Indication: Plasma cell myeloma
     Dosage: UNK UNK, CYCLE, ADMINISTERED UNDER THE DARA-R-D REGIMEN
     Route: 065
     Dates: start: 201805
  8. LENALIDOMIDE [Suspect]
     Active Substance: LENALIDOMIDE
     Dosage: 15 MILLIGRAM, QD, ADMINISTERED ON DAYS 1-21 UNDER THE KRD-PACE REGIMEN
     Route: 065
  9. CARFILZOMIB [Suspect]
     Active Substance: CARFILZOMIB
     Indication: Plasma cell myeloma
     Dosage: 20 MILLIGRAM/SQ. METER, CYCLE, ADMINISTERED ON DAY 1 OF EACH CYCLE UNDER THE?.
     Route: 065
  10. CARFILZOMIB [Suspect]
     Active Substance: CARFILZOMIB
     Dosage: 27 MILLIGRAM/SQ. METER, CYCLE, ADMINISTERED ON DAY 2 OF EACH CYCLE UNDER THE....
     Route: 065
  11. CYCLOPHOSPHAMIDE [Suspect]
     Active Substance: CYCLOPHOSPHAMIDE
     Indication: Plasma cell myeloma
     Dosage: 400 MILLIGRAM/SQ. METER, QD, ADMINISTERED UNDER THE KRD-PACE REGIMEN
     Route: 065

REACTIONS (7)
  - Disease progression [Unknown]
  - Drug ineffective [Unknown]
  - Neutropenia [Recovered/Resolved]
  - Thrombocytopenia [Recovered/Resolved]
  - Anaemia [Recovered/Resolved]
  - Mucosal inflammation [Recovered/Resolved]
  - Deep vein thrombosis [Recovered/Resolved]
